FAERS Safety Report 5110136-8 (Version None)
Quarter: 2006Q3

REPORT INFORMATION
  Report Type: 
  Country: None (occurrence: None)
  Receive Date: 20060921
  Receipt Date: 20060208
  Transmission Date: 20061208
  Serious: Yes (Hospitalization, Other)
  Sender: FDA-Public Use
  Company Number: US-BAYER-200610744BWH

PATIENT
  Age: 53 Year
  Sex: Male
  Weight: 69 kg

DRUGS (22)
  1. SORAFENIB [Suspect]
     Indication: METASTATIC RENAL CELL CARCINOMA
     Dosage: TOTAL DAILY DOSE: 400 MG  UNIT DOSE: 200 MG
     Route: 048
     Dates: start: 20060110, end: 20060131
  2. CELEBREX [Concomitant]
     Indication: ARTHRITIS
     Route: 048
     Dates: start: 20060131
  3. CELEBREX [Concomitant]
     Route: 048
     Dates: start: 20040301
  4. DOXEPIN [Concomitant]
     Indication: ANXIETY
     Route: 048
     Dates: start: 20060131
  5. DOXEPIN [Concomitant]
     Route: 048
     Dates: start: 20040301
  6. NEURONTIN [Concomitant]
     Indication: CONVULSION
     Route: 048
     Dates: start: 20040401
  7. NEURONTIN [Concomitant]
     Route: 048
     Dates: start: 20060131
  8. MSIR [Concomitant]
     Indication: PAIN
     Route: 048
     Dates: start: 20041101
  9. MS CONTIN [Concomitant]
     Indication: PAIN
     Route: 048
     Dates: start: 20040401
  10. COLACE [Concomitant]
     Indication: CONSTIPATION PROPHYLAXIS
     Route: 048
     Dates: start: 20040401
  11. COLACE [Concomitant]
     Route: 048
     Dates: start: 20060131
  12. KLOR-CON [Concomitant]
     Indication: HYPOKALAEMIA
     Route: 048
     Dates: start: 20050801
  13. ZOMETA [Concomitant]
     Indication: BLOOD CALCIUM ABNORMAL
     Route: 042
     Dates: start: 20040101
  14. SLOW-K [Concomitant]
     Indication: HYPOKALAEMIA
     Route: 048
     Dates: start: 20060131
  15. AREDIA [Concomitant]
     Indication: BLOOD CALCIUM ABNORMAL
     Route: 042
     Dates: start: 20060201, end: 20060201
  16. POTASSIUM CHLORIDE [Concomitant]
     Indication: HYPOKALAEMIA
     Route: 042
     Dates: start: 20060201, end: 20060202
  17. LOVENOX [Concomitant]
     Indication: THROMBOSIS PROPHYLAXIS
     Route: 058
     Dates: start: 20060202
  18. LASIX [Concomitant]
     Indication: DIURETIC THERAPY
     Route: 042
     Dates: start: 20060206, end: 20060206
  19. LASIX [Concomitant]
     Route: 042
     Dates: start: 20060201, end: 20060201
  20. LASIX [Concomitant]
     Route: 042
     Dates: start: 20060205, end: 20060205
  21. MIRALAX [Concomitant]
     Indication: CONSTIPATION
     Route: 048
     Dates: start: 20060203
  22. PROTONIX [Concomitant]
     Indication: GASTROOESOPHAGEAL REFLUX DISEASE
     Route: 048
     Dates: start: 20060204

REACTIONS (6)
  - ANOREXIA [None]
  - ASTHENIA [None]
  - HAEMOGLOBIN DECREASED [None]
  - PAIN [None]
  - RETCHING [None]
  - WEIGHT DECREASED [None]
